FAERS Safety Report 23559179 (Version 2)
Quarter: 2024Q1

REPORT INFORMATION
  Report Type: Spontaneous
  Country: DE (occurrence: DE)
  Receive Date: 20240223
  Receipt Date: 20240223
  Transmission Date: 20240409
  Serious: Yes (Other)
  Sender: FDA-Public Use
  Company Number: DE-DSJP-DSE-2023-136928

PATIENT
  Age: 70 Year
  Sex: Female
  Weight: 64 kg

DRUGS (5)
  1. ENHERTU [Suspect]
     Active Substance: FAM-TRASTUZUMAB DERUXTECAN-NXKI
     Indication: Breast cancer metastatic
     Dosage: 5.4 MG/KG, INFUSION
     Route: 065
     Dates: start: 20221223, end: 20240201
  2. MARCUMAR [Concomitant]
     Active Substance: PHENPROCOUMON
     Indication: Deep vein thrombosis
     Dosage: 1/2 TO 1 TABLET ACCORDING TO INR
     Route: 065
     Dates: start: 2006
  3. HYGROTON [Concomitant]
     Active Substance: CHLORTHALIDONE
     Indication: Hypertension
     Dosage: 1 DF, QD (IN MORNING)
     Route: 065
     Dates: start: 2011
  4. CANDESARTAN [Concomitant]
     Active Substance: CANDESARTAN
     Indication: Hypertension
     Dosage: 1 DF, QD (IN MORNING)
     Route: 065
     Dates: start: 2011
  5. CHOLECALCIFEROL [Concomitant]
     Active Substance: CHOLECALCIFEROL
     Indication: Breast cancer metastatic
     Dosage: 1 GTT, QD (1 DROP IN MORNING)
     Route: 065
     Dates: start: 2015

REACTIONS (10)
  - Chest pain [Not Recovered/Not Resolved]
  - Hypoaesthesia [Not Recovered/Not Resolved]
  - Hypoaesthesia [Not Recovered/Not Resolved]
  - Pain [Not Recovered/Not Resolved]
  - Discomfort [Unknown]
  - Bone pain [Unknown]
  - Alopecia [Unknown]
  - Flatulence [Unknown]
  - Abdominal discomfort [Unknown]
  - Diarrhoea [Unknown]

NARRATIVE: CASE EVENT DATE: 20230101
